FAERS Safety Report 12965439 (Version 3)
Quarter: 2016Q4

REPORT INFORMATION
  Report Type: Report from Study
  Country: TR (occurrence: TR)
  Receive Date: 20161122
  Receipt Date: 20161230
  Transmission Date: 20170207
  Serious: Yes (Hospitalization)
  Sender: FDA-Public Use
  Company Number: TR-TAKEDA-2016TUS020710

PATIENT
  Age: 32 Year
  Sex: Female
  Weight: 86.9 kg

DRUGS (5)
  1. ADALIMUMAB [Suspect]
     Active Substance: ADALIMUMAB
     Indication: COLITIS ULCERATIVE
     Dosage: 40 MG,
     Route: 065
     Dates: start: 20160727
  2. ASACOL [Concomitant]
     Active Substance: MESALAMINE
     Indication: COLITIS ULCERATIVE
     Dosage: 1600 MG, TID
     Route: 048
     Dates: start: 20160217
  3. IMURAN [Concomitant]
     Active Substance: AZATHIOPRINE
     Indication: COLITIS ULCERATIVE
     Dosage: 50 MG, TID
     Route: 048
     Dates: start: 20160314
  4. RABIZA [Concomitant]
     Indication: DYSPEPSIA
     Dosage: 20 MG, QD
     Route: 048
     Dates: start: 20161013
  5. REGINON [Concomitant]
     Indication: CONTRACEPTION
     Dosage: 0.02/0.075 MG, QD
     Route: 048
     Dates: start: 20160814

REACTIONS (1)
  - Cytomegalovirus infection [Recovered/Resolved]

NARRATIVE: CASE EVENT DATE: 20161107
